FAERS Safety Report 9397465 (Version 1)
Quarter: 2013Q3

REPORT INFORMATION
  Report Type: Spontaneous
  Country: US (occurrence: US)
  Receive Date: 20130712
  Receipt Date: 20130712
  Transmission Date: 20140515
  Serious: Yes (Death, Other)
  Sender: FDA-Public Use
  Company Number: US-PFIZER INC-2013203581

PATIENT
  Age: 73 Year
  Sex: Male

DRUGS (1)
  1. REVATIO [Suspect]
     Indication: RESPIRATORY DISORDER
     Dosage: 40 MG, 3X/DAY
     Dates: start: 20021116

REACTIONS (2)
  - Cardiac failure [Fatal]
  - Cardiac infection [Fatal]
